FAERS Safety Report 10923852 (Version 1)
Quarter: 2015Q1

REPORT INFORMATION
  Report Type: Report from Study
  Country: EC (occurrence: EC)
  Receive Date: 20150318
  Receipt Date: 20150318
  Transmission Date: 20150721
  Serious: Yes (Death)
  Sender: FDA-Public Use
  Company Number: EC-ROCHE-1552468

PATIENT
  Age: 52 Year
  Sex: Female

DRUGS (1)
  1. AVASTIN [Suspect]
     Active Substance: BEVACIZUMAB
     Indication: MALIGNANT NERVOUS SYSTEM NEOPLASM
     Route: 042

REACTIONS (3)
  - Infection [Fatal]
  - Multi-organ failure [Fatal]
  - Decreased immune responsiveness [Fatal]

NARRATIVE: CASE EVENT DATE: 20150311
